FAERS Safety Report 7606242-6 (Version None)
Quarter: 2011Q3

REPORT INFORMATION
  Report Type: 
  Country: None (occurrence: None)
  Receive Date: 20110713
  Receipt Date: 20110701
  Transmission Date: 20111222
  Serious: Yes (Hospitalization, Other)
  Sender: FDA-Public Use
  Company Number: US-BAYER-201034272NA

PATIENT
  Age: 29 Year
  Sex: Female
  Weight: 57.143 kg

DRUGS (1)
  1. MIRENA [Suspect]
     Indication: CONTRACEPTION
     Dosage: 20 MCG/24HR, CONT
     Route: 015
     Dates: start: 20061011, end: 20100910

REACTIONS (4)
  - PREGNANCY WITH CONTRACEPTIVE DEVICE [None]
  - BLIGHTED OVUM [None]
  - ABORTION SPONTANEOUS [None]
  - POST PROCEDURAL HAEMORRHAGE [None]
